FAERS Safety Report 4305672-8 (Version None)
Quarter: 2004Q1

REPORT INFORMATION
  Report Type: 
  Country: None (occurrence: None)
  Receive Date: 20040226
  Receipt Date: 20040108
  Transmission Date: 20041129
  Serious: Yes (Hospitalization)
  Sender: FDA-Public Use
  Company Number: US-BRISTOL-MYERS SQUIBB COMPANY-12472783

PATIENT
  Age: 74 Year
  Sex: Female
  Weight: 93 kg

DRUGS (2)
  1. ARIPIPRAZOLE [Suspect]
     Indication: MAJOR DEPRESSION
     Route: 048
  2. ARIPIPRAZOLE [Suspect]
     Indication: DEMENTIA
     Route: 048

REACTIONS (1)
  - RHABDOMYOLYSIS [None]
